FAERS Safety Report 14199430 (Version 5)
Quarter: 2018Q4

REPORT INFORMATION
  Report Type: Spontaneous
  Country: US (occurrence: US)
  Receive Date: 20171117
  Receipt Date: 20181115
  Transmission Date: 20190204
  Serious: No
  Sender: FDA-Public Use
  Company Number: US-PFIZER INC-2017494686

PATIENT
  Age: 50 Year
  Sex: Female
  Weight: 57 kg

DRUGS (29)
  1. DOCETAXEL. [Suspect]
     Active Substance: DOCETAXEL
     Dosage: CYCLE 4 WAS 111MG, EVERY 3 WEEKS
  2. PARAPLATIN [Concomitant]
     Active Substance: CARBOPLATIN
     Indication: CHEMOTHERAPY
     Dosage: UNK
  3. HERCEPTIN [Concomitant]
     Active Substance: TRASTUZUMAB
     Indication: CHEMOTHERAPY
     Dosage: UNK
  4. BENADRYL [Concomitant]
     Active Substance: DIPHENHYDRAMINE HYDROCHLORIDE
     Dosage: UNK
  5. NEULASTA [Concomitant]
     Active Substance: PEGFILGRASTIM
     Dosage: UNK
  6. PROCHLORPERAZINE. [Concomitant]
     Active Substance: PROCHLORPERAZINE
     Dosage: UNK
  7. DOCETAXEL. [Suspect]
     Active Substance: DOCETAXEL
     Dosage: CYCLE 3 WAS 111MG, EVERY 3 WEEKS
  8. DOCETAXEL. [Suspect]
     Active Substance: DOCETAXEL
     Dosage: CYCLE 5, WAS 111MG EVERY 3 WEEKS
  9. CYMBALTA [Concomitant]
     Active Substance: DULOXETINE HYDROCHLORIDE
     Dosage: UNK
  10. DOCETAXEL. [Suspect]
     Active Substance: DOCETAXEL
     Dosage: CYCLE 2 WAS 112 MG, EVERY 3 WEEKS
  11. KYTRIL [Concomitant]
     Active Substance: GRANISETRON HYDROCHLORIDE
     Dosage: UNK
  12. DOCETAXEL. [Suspect]
     Active Substance: DOCETAXEL
     Dosage: CYCLE 3, WAS 111 MG, EVERY 3 WEEKS
  13. DOCETAXEL. [Suspect]
     Active Substance: DOCETAXEL
     Dosage: CYCLE 5 WAS 111 MG, EVERY 3 WEEKS
  14. ARIMIDEX [Concomitant]
     Active Substance: ANASTROZOLE
     Indication: HORMONE THERAPY
     Dosage: UNK
     Dates: start: 20120524, end: 201706
  15. DOCUSATE SODIUM. [Concomitant]
     Active Substance: DOCUSATE SODIUM
     Dosage: UNK
  16. NORCO [Concomitant]
     Active Substance: ACETAMINOPHEN\HYDROCODONE BITARTRATE
     Dosage: UNK
  17. TOPIRAMATE. [Concomitant]
     Active Substance: TOPIRAMATE
     Dosage: UNK
  18. DOCETAXEL. [Suspect]
     Active Substance: DOCETAXEL
     Indication: INVASIVE DUCTAL BREAST CARCINOMA
     Dosage: CYCLE 1 WAS 113 MG, EVERY 3 WEEKS
     Dates: start: 20120509
  19. DOCETAXEL. [Suspect]
     Active Substance: DOCETAXEL
     Dosage: CYCLE 6 (UNKNOWN DOSE), EVERY 3 WEEKS
     Dates: end: 20120829
  20. TAXOTERE [Concomitant]
     Active Substance: DOCETAXEL
     Indication: CHEMOTHERAPY
     Dosage: UNK
  21. DEXAMETHASONE. [Concomitant]
     Active Substance: DEXAMETHASONE
     Dosage: UNK
  22. DOCETAXEL. [Suspect]
     Active Substance: DOCETAXEL
     Indication: INVASIVE DUCTAL BREAST CARCINOMA
     Dosage: CYCLE 1 WAS 113 MG, EVERY 3 WEEKS
     Dates: start: 20120509
  23. ZANTAC [Concomitant]
     Active Substance: RANITIDINE HYDROCHLORIDE
     Dosage: UNK
  24. ONDANSETRON [Concomitant]
     Active Substance: ONDANSETRON
     Dosage: UNK
  25. DOCETAXEL. [Suspect]
     Active Substance: DOCETAXEL
     Dosage: CYCLE 2 WAS 112 MG, EVERY 3 WEEKS
  26. DOCETAXEL. [Suspect]
     Active Substance: DOCETAXEL
     Dosage: CYCLE 6 (AT UNKNOWN DOSE), EVERY 3 WEEKS
     Dates: end: 20120829
  27. DOCETAXEL. [Suspect]
     Active Substance: DOCETAXEL
     Dosage: CYCLE 4 WAS 111 MG, EVERY 3 WEEKS
  28. DECADRON [Concomitant]
     Active Substance: DEXAMETHASONE
     Dosage: UNK
  29. COLACE [Concomitant]
     Active Substance: DOCUSATE SODIUM
     Dosage: UNK

REACTIONS (5)
  - Madarosis [Not Recovered/Not Resolved]
  - Hair texture abnormal [Not Recovered/Not Resolved]
  - Hair disorder [Not Recovered/Not Resolved]
  - Alopecia [Not Recovered/Not Resolved]
  - Hair colour changes [Not Recovered/Not Resolved]

NARRATIVE: CASE EVENT DATE: 20130301
